FAERS Safety Report 19295764 (Version 1)
Quarter: 2021Q2

REPORT INFORMATION
  Report Type: Spontaneous
  Country: CA (occurrence: CA)
  Receive Date: 20210524
  Receipt Date: 20210524
  Transmission Date: 20210717
  Serious: Yes (Hospitalization)
  Sender: FDA-Public Use
  Company Number: CA-PFIZER INC-2021530307

PATIENT
  Age: 70 Year
  Sex: Female

DRUGS (1)
  1. RUXIENCE [Suspect]
     Active Substance: RITUXIMAB-PVVR

REACTIONS (4)
  - Paraesthesia oral [Unknown]
  - Pharyngeal paraesthesia [Unknown]
  - Tongue pruritus [Unknown]
  - Throat irritation [Unknown]
